FAERS Safety Report 12547180 (Version 1)
Quarter: 2016Q3

REPORT INFORMATION
  Report Type: Spontaneous
  Country: DE (occurrence: JP)
  Receive Date: 20160711
  Receipt Date: 20160711
  Transmission Date: 20161109
  Serious: Yes (Death, Hospitalization)
  Sender: FDA-Public Use
  Company Number: JP-FRI-1000084767

PATIENT
  Age: 74 Year
  Sex: Female

DRUGS (5)
  1. MEMANTINE. [Suspect]
     Active Substance: MEMANTINE
     Dosage: 10 MG
     Route: 048
     Dates: start: 20150220, end: 20150226
  2. MEMANTINE. [Suspect]
     Active Substance: MEMANTINE
     Dosage: 20 MG
     Route: 048
     Dates: start: 20150306, end: 20150406
  3. MEMANTINE. [Suspect]
     Active Substance: MEMANTINE
     Dosage: 15 MG
     Route: 048
     Dates: start: 20150228, end: 20150305
  4. MEMANTINE. [Suspect]
     Active Substance: MEMANTINE
     Indication: DEMENTIA
     Dates: start: 201505
  5. MEMANTINE. [Suspect]
     Active Substance: MEMANTINE
     Dosage: 5 MG
     Route: 048
     Dates: start: 20150215, end: 20150219

REACTIONS (5)
  - Decreased appetite [Recovered/Resolved]
  - Platelet count decreased [Recovered/Resolved]
  - Anaemia [Recovered/Resolved]
  - Pneumonia [Fatal]
  - Pneumonia [Recovered/Resolved]

NARRATIVE: CASE EVENT DATE: 20150406
